FAERS Safety Report 5825629-5 (Version None)
Quarter: 2008Q3

REPORT INFORMATION
  Report Type: 
  Country: None (occurrence: None)
  Receive Date: 20080729
  Receipt Date: 20080721
  Transmission Date: 20090109
  Serious: Yes (Congenital Anomaly)
  Sender: FDA-Public Use
  Company Number: B0530107A

PATIENT
  Sex: Female

DRUGS (2)
  1. LAMICTAL [Suspect]
     Indication: EPILEPSY
  2. ACIDE FOLIQUE [Concomitant]
     Indication: DRUG USE FOR UNKNOWN INDICATION

REACTIONS (5)
  - ANORECTAL DISCOMFORT [None]
  - CONGENITAL LABIA PUDENDI ADHESIONS [None]
  - DRUG EXPOSURE DURING PREGNANCY [None]
  - OESTROGEN DEFICIENCY [None]
  - VAGINAL ATRESIA [None]
